FAERS Safety Report 5003063-8 (Version None)
Quarter: 2006Q2

REPORT INFORMATION
  Report Type: 
  Country: None (occurrence: None)
  Receive Date: 20060516
  Receipt Date: 20060508
  Transmission Date: 20061013
  Serious: Yes (Other)
  Sender: FDA-Public Use
  Company Number: PR-MERCK-0605USA01509

PATIENT
  Age: 50 Year
  Sex: Male

DRUGS (3)
  1. VYTORIN [Suspect]
     Route: 048
  2. PLAVIX [Concomitant]
     Route: 065
  3. NORVASC [Concomitant]
     Route: 065

REACTIONS (2)
  - CARDIAC DISORDER [None]
  - OEDEMA PERIPHERAL [None]
